FAERS Safety Report 9046866 (Version 1)
Quarter: 2013Q1

REPORT INFORMATION
  Report Type: Spontaneous
  Country: US (occurrence: None)
  Receive Date: 20130129
  Receipt Date: 20130129
  Transmission Date: 20140127
  Serious: No
  Sender: FDA-Public Use
  Company Number: None

PATIENT
  Sex: Male

DRUGS (2)
  1. KLONOPIN [Suspect]
     Indication: OBSESSIVE-COMPULSIVE DISORDER
     Dosage: KLONOPIN 0.5 MG DAW  1 HRS #30
  2. KLONOPIN [Suspect]
     Indication: ANXIETY
     Dosage: KLONOPIN 0.5 MG DAW  1 HRS #30

REACTIONS (2)
  - No therapeutic response [None]
  - Sedation [None]
